FAERS Safety Report 7787447-0 (Version None)
Quarter: 2011Q3

REPORT INFORMATION
  Report Type: 
  Country: None (occurrence: None)
  Receive Date: 20110929
  Receipt Date: 20110927
  Transmission Date: 20111222
  Serious: Yes (Hospitalization)
  Sender: FDA-Public Use
  Company Number: US-ABBOTT-11P-163-0853099-00

PATIENT
  Sex: Female
  Weight: 86.26 kg

DRUGS (2)
  1. HUMIRA [Suspect]
     Indication: PSORIATIC ARTHROPATHY
     Dosage: Q 8DAYS, THEN 40MG
     Dates: start: 20110812, end: 20110819
  2. HUMIRA [Suspect]
     Dates: end: 20110819

REACTIONS (9)
  - FATIGUE [None]
  - VOMITING [None]
  - ADVERSE DRUG REACTION [None]
  - MALAISE [None]
  - BLISTER [None]
  - NIGHT SWEATS [None]
  - PAIN [None]
  - PYREXIA [None]
  - DRUG ERUPTION [None]
